FAERS Safety Report 5063894-5 (Version None)
Quarter: 2006Q3

REPORT INFORMATION
  Report Type: 
  Country: None (occurrence: None)
  Receive Date: 20060703
  Receipt Date: 20060403
  Transmission Date: 20061208
  Serious: No
  Sender: FDA-Public Use
  Company Number: 2006S1002888

PATIENT
  Age: 31 Year
  Sex: Male
  Weight: 136.0791 kg

DRUGS (7)
  1. CLOZAPINE [Suspect]
     Indication: SCHIZOPHRENIA
     Dosage: 100 MG; HS; ORAL
     Route: 048
  2. ARIPIPRAZOLE [Concomitant]
  3. HALPERIDOL [Concomitant]
  4. QUETIAPINE FUMARATE [Concomitant]
  5. BENZTROPINE MESYLATE [Concomitant]
  6. VALPROATE SODIUM [Concomitant]
  7. CLONAZEPAM [Concomitant]

REACTIONS (1)
  - GRANULOCYTOPENIA [None]
